FAERS Safety Report 11020817 (Version 2)
Quarter: 2015Q2

REPORT INFORMATION
  Report Type: Spontaneous
  Country: SI (occurrence: SI)
  Receive Date: 20150413
  Receipt Date: 20150430
  Transmission Date: 20150821
  Serious: Yes (Other)
  Sender: FDA-Public Use
  Company Number: SI-AMGEN-SVNSP2015034492

PATIENT
  Age: 72 Year
  Sex: Male
  Weight: 67 kg

DRUGS (17)
  1. XGEVA [Suspect]
     Active Substance: DENOSUMAB
     Dosage: 120 MG, Q4WK
     Route: 058
     Dates: start: 20130905
  2. PLIVIT D3 [Concomitant]
     Active Substance: CHOLECALCIFEROL
     Dosage: 5 GTT, UNK
     Route: 048
  3. SUTENT [Concomitant]
     Active Substance: SUNITINIB MALATE
     Indication: RENAL CANCER
     Dosage: 50 MG, UNK
     Route: 048
     Dates: start: 20140522, end: 20150312
  4. SUNITINIB [Concomitant]
     Active Substance: SUNITINIB
     Indication: CHEMOTHERAPY
     Dosage: 50 MG, UNK
     Dates: start: 20140522, end: 20150312
  5. XGEVA [Suspect]
     Active Substance: DENOSUMAB
     Dosage: 120 MG, Q4WK
     Route: 058
     Dates: start: 20140514
  6. XGEVA [Suspect]
     Active Substance: DENOSUMAB
     Dosage: 120 MG, Q4WK
     Route: 058
     Dates: start: 20140611
  7. XGEVA [Suspect]
     Active Substance: DENOSUMAB
     Dosage: 120 MG, Q4WK
     Route: 058
     Dates: start: 20141029
  8. XGEVA [Suspect]
     Active Substance: DENOSUMAB
     Indication: RENAL CANCER METASTATIC
     Dosage: 120 MG, Q4WK
     Route: 058
     Dates: start: 20130516, end: 201412
  9. XGEVA [Suspect]
     Active Substance: DENOSUMAB
     Dosage: 120 MG, Q4WK
     Route: 058
     Dates: start: 20141126
  10. NEXAVAR [Concomitant]
     Active Substance: SORAFENIB
     Dosage: UNK
     Route: 065
     Dates: start: 20130613, end: 20130716
  11. XGEVA [Suspect]
     Active Substance: DENOSUMAB
     Dosage: 120 MG, Q4WK
     Route: 058
     Dates: start: 20140805
  12. SORAFENIB [Concomitant]
     Active Substance: SORAFENIB
     Indication: CHEMOTHERAPY
     Dosage: UNK
     Dates: start: 20130613, end: 20130716
  13. XGEVA [Suspect]
     Active Substance: DENOSUMAB
     Dosage: 120 MG, Q4WK
     Route: 058
     Dates: start: 20140710
  14. XGEVA [Suspect]
     Active Substance: DENOSUMAB
     Dosage: 120 MG, Q4WK
     Route: 058
     Dates: start: 20140904
  15. XGEVA [Suspect]
     Active Substance: DENOSUMAB
     Dosage: 120 MG, Q4WK
     Route: 058
     Dates: start: 20141001
  16. XGEVA [Suspect]
     Active Substance: DENOSUMAB
     Dosage: 120 MG, Q4WK
     Route: 058
     Dates: start: 20130613
  17. AFINITOR [Concomitant]
     Active Substance: EVEROLIMUS
     Indication: RENAL CANCER
     Dosage: 5 MG, QD
     Route: 048
     Dates: start: 20130716, end: 20140522

REACTIONS (1)
  - Osteonecrosis of jaw [Not Recovered/Not Resolved]

NARRATIVE: CASE EVENT DATE: 20141201
